FAERS Safety Report 7372425-6 (Version None)
Quarter: 2011Q1

REPORT INFORMATION
  Report Type: 
  Country: None (occurrence: None)
  Receive Date: 20110324
  Receipt Date: 20101029
  Transmission Date: 20110831
  Serious: Yes (Other)
  Sender: FDA-Public Use
  Company Number: PHHY2010DE90941

PATIENT
  Sex: Female

DRUGS (1)
  1. EXTAVIA [Suspect]
     Route: 058
     Dates: start: 20100830

REACTIONS (6)
  - HEADACHE [None]
  - DIABETES MELLITUS [None]
  - BALANCE DISORDER [None]
  - FATIGUE [None]
  - HYPERTENSION [None]
  - GASTROINTESTINAL DISORDER [None]
